FAERS Safety Report 22216512 (Version 1)
Quarter: 2023Q2

REPORT INFORMATION
  Report Type: Spontaneous
  Country: US (occurrence: US)
  Receive Date: 20230417
  Receipt Date: 20230417
  Transmission Date: 20230722
  Serious: Yes (Hospitalization)
  Sender: FDA-Public Use
  Company Number: US-BIOVITRUM-2023-US-009272

PATIENT
  Sex: Female
  Weight: 6 kg

DRUGS (7)
  1. SYNAGIS [Suspect]
     Active Substance: PALIVIZUMAB
     Indication: Heart disease congenital
     Dosage: ONCE A MONTH
     Route: 030
  2. SYNAGIS [Suspect]
     Active Substance: PALIVIZUMAB
     Indication: Cardiac resynchronisation therapy
  3. SYNAGIS [Suspect]
     Active Substance: PALIVIZUMAB
     Indication: Gastrostomy
  4. SYNAGIS [Suspect]
     Active Substance: PALIVIZUMAB
     Indication: Antiviral prophylaxis
  5. SYNAGIS [Suspect]
     Active Substance: PALIVIZUMAB
     Indication: Failure to thrive
  6. SYNAGIS [Suspect]
     Active Substance: PALIVIZUMAB
     Indication: Feeding disorder
  7. ASPIRIN [Concomitant]
     Active Substance: ASPIRIN
     Indication: Product used for unknown indication
     Dosage: TAB CHEW

REACTIONS (1)
  - Cardiovascular disorder [Unknown]
